FAERS Safety Report 15353113 (Version 2)
Quarter: 2018Q3

REPORT INFORMATION
  Report Type: Report from Study
  Country: US (occurrence: US)
  Receive Date: 20180905
  Receipt Date: 20180911
  Transmission Date: 20181010
  Serious: Yes (Hospitalization)
  Sender: FDA-Public Use
  Company Number: US-ACTELION-A-NJ2018-178221

PATIENT
  Age: 66 Year
  Sex: Male

DRUGS (1)
  1. UPTRAVI [Suspect]
     Active Substance: SELEXIPAG
     Indication: PULMONARY ARTERIAL HYPERTENSION
     Dosage: 1000 MCG, BID
     Route: 048
     Dates: start: 201807

REACTIONS (5)
  - Wrong technique in product usage process [Unknown]
  - Fluid retention [Unknown]
  - Pneumonia [Unknown]
  - Oesophageal stenosis [Unknown]
  - Dyspnoea [Unknown]
